FAERS Safety Report 8558763-X (Version None)
Quarter: 2012Q3

REPORT INFORMATION
  Report Type: 
  Country: None (occurrence: None)
  Receive Date: 20120801
  Receipt Date: 20120727
  Transmission Date: 20120928
  Serious: Yes (Disabling)
  Sender: FDA-Public Use
  Company Number: US-MSD-1207USA008186

PATIENT

DRUGS (3)
  1. RIBASPHERE [Suspect]
     Dosage: UNK
     Dates: start: 20120427, end: 20120716
  2. PEG-INTRON [Suspect]
     Indication: HEPATITIS C
     Dosage: 150 MICROGRAM, QW
     Dates: start: 20120427, end: 20120716
  3. TELAPREVIR [Suspect]
     Dosage: UNK

REACTIONS (14)
  - RASH [None]
  - VISUAL IMPAIRMENT [None]
  - GENERALISED OEDEMA [None]
  - COUGH [None]
  - GASTROINTESTINAL PAIN [None]
  - ANXIETY [None]
  - FATIGUE [None]
  - DIARRHOEA [None]
  - HEADACHE [None]
  - ANAEMIA [None]
  - DECREASED APPETITE [None]
  - DYSPNOEA [None]
  - MOOD SWINGS [None]
  - DEPRESSION [None]
